FAERS Safety Report 7664669-0 (Version None)
Quarter: 2011Q3

REPORT INFORMATION
  Report Type: 
  Country: None (occurrence: None)
  Receive Date: 20110806
  Receipt Date: 20110110
  Transmission Date: 20111222
  Serious: No
  Sender: FDA-Public Use
  Company Number: US-ABBOTT-11P-163-0696439-00

PATIENT
  Sex: Female
  Weight: 61.29 kg

DRUGS (11)
  1. ASPIRIN [Concomitant]
     Indication: PROPHYLAXIS
     Dosage: AT NIGHT
  2. BISOPROLOL FUMARATE [Concomitant]
     Indication: MITRAL VALVE PROLAPSE
  3. RAMIPRIL [Concomitant]
     Indication: HYPERTENSION
  4. NIASPAN [Suspect]
     Indication: BLOOD CHOLESTEROL INCREASED
     Dates: start: 20101206
  5. ZOLOFT [Concomitant]
     Indication: DEPRESSION
  6. HYDROCODONE [Concomitant]
     Indication: PAIN
  7. ASPIRIN [Concomitant]
     Indication: CARDIAC DISORDER
  8. VALIUM [Concomitant]
     Indication: PAIN
  9. LEVOTHYROXINE SODIUM [Concomitant]
     Indication: HYPOTHYROIDISM
  10. ASPIRIN [Concomitant]
  11. TRICOR [Concomitant]
     Indication: BLOOD CHOLESTEROL INCREASED

REACTIONS (2)
  - FLUSHING [None]
  - PRURITUS [None]
